FAERS Safety Report 13965664 (Version 1)
Quarter: 2017Q3

REPORT INFORMATION
  Report Type: Spontaneous
  Country: US (occurrence: US)
  Receive Date: 20170913
  Receipt Date: 20170913
  Transmission Date: 20171128
  Serious: No
  Sender: FDA-Public Use
  Company Number: US-PFIZER INC-2017392769

PATIENT
  Age: 60 Year
  Sex: Female
  Weight: 84 kg

DRUGS (2)
  1. LYRICA [Suspect]
     Active Substance: PREGABALIN
     Indication: FIBROMYALGIA
     Dosage: 50MG CAPSULE, TWICE PER DAY
     Route: 048
     Dates: start: 20170727, end: 20170815
  2. LYRICA [Suspect]
     Active Substance: PREGABALIN
     Indication: NEURALGIA

REACTIONS (3)
  - Pain [Unknown]
  - Headache [Recovered/Resolved with Sequelae]
  - Vision blurred [Recovered/Resolved]

NARRATIVE: CASE EVENT DATE: 20170727
